FAERS Safety Report 23913355 (Version 1)
Quarter: 2024Q2

REPORT INFORMATION
  Report Type: Spontaneous
  Country: CN (occurrence: CN)
  Receive Date: 20240529
  Receipt Date: 20240529
  Transmission Date: 20240715
  Serious: Yes (Hospitalization)
  Sender: FDA-Public Use
  Company Number: CN-PFIZER INC-PV202400068587

PATIENT
  Age: 93 Year
  Sex: Female
  Weight: 35 kg

DRUGS (3)
  1. AVIBACTAM SODIUM\CEFTAZIDIME [Suspect]
     Active Substance: AVIBACTAM SODIUM\CEFTAZIDIME
     Indication: Pneumonia
     Dosage: 1.25 G, 2X/DAY, CUMULATIVE DOSE: 7.5 G
     Route: 041
     Dates: start: 20240507, end: 20240514
  2. OMADACYCLINE TOSILATE [Concomitant]
     Indication: Pneumonia
     Dosage: 0.1 G, 1X/DAY, CUMULATIVE DOSE: 0.3 G
     Route: 041
     Dates: start: 20240507, end: 20240511
  3. CANCIDAS [Concomitant]
     Active Substance: CASPOFUNGIN ACETATE
     Indication: Pneumonia
     Dosage: 50 MG, 1X/DAY, CUMULATIVE DOSE: 150 MG
     Route: 041
     Dates: start: 20240507, end: 20240524

REACTIONS (2)
  - Blood bilirubin increased [Unknown]
  - Off label use [Unknown]

NARRATIVE: CASE EVENT DATE: 20240507
